FAERS Safety Report 6760074-X (Version None)
Quarter: 2010Q2

REPORT INFORMATION
  Report Type: 
  Country: None (occurrence: None)
  Receive Date: 20100608
  Receipt Date: 20100525
  Transmission Date: 20101027
  Serious: Yes (Hospitalization)
  Sender: FDA-Public Use
  Company Number: GB-RANBAXY-2010RR-34280

PATIENT
  Age: 65 Year
  Sex: Female
  Weight: 115 kg

DRUGS (8)
  1. ASPIRIN [Suspect]
  2. ATENOLOL [Suspect]
  3. CARBIMAZOLE [Suspect]
  4. METFORMIN [Suspect]
  5. MIXTARD HUMAN 70/30 [Suspect]
  6. PAROXETINE HCL [Suspect]
  7. RAMIPRIL [Suspect]
  8. SIMVASTATIN [Suspect]

REACTIONS (2)
  - HYPERPARATHYROIDISM PRIMARY [None]
  - PARATHYROID TUMOUR BENIGN [None]
